FAERS Safety Report 9841502 (Version 3)
Quarter: 2014Q1

REPORT INFORMATION
  Report Type: Report from Study
  Country: KR (occurrence: KR)
  Receive Date: 20140124
  Receipt Date: 20140221
  Transmission Date: 20141002
  Serious: Yes (Other)
  Sender: FDA-Public Use
  Company Number: KR-ELI_LILLY_AND_COMPANY-KR201311005547

PATIENT
  Age: 75 Year
  Sex: Male

DRUGS (8)
  1. LISPRO 25LIS75NPL KWIKPEN / MIRIOPEN [Suspect]
     Indication: TYPE 2 DIABETES MELLITUS
     Dosage: 15 U, BID
     Route: 058
     Dates: start: 20131112
  2. LISPRO 25LIS75NPL KWIKPEN / MIRIOPEN [Suspect]
     Dosage: 10 U, BID
     Route: 058
  3. LISPRO 25LIS75NPL KWIKPEN / MIRIOPEN [Suspect]
     Dosage: 16 U, QD
     Route: 058
     Dates: start: 201312
  4. LISPRO 25LIS75NPL KWIKPEN / MIRIOPEN [Suspect]
     Dosage: 10 U, QD
     Route: 058
     Dates: start: 201312
  5. LISPRO 25LIS75NPL KWIKPEN / MIRIOPEN [Suspect]
     Dosage: 12 U, QD
     Route: 058
  6. LISPRO 25LIS75NPL KWIKPEN / MIRIOPEN [Suspect]
     Dosage: 8 U, QD
     Route: 058
  7. LISPRO 25LIS75NPL KWIKPEN / MIRIOPEN [Suspect]
     Dosage: 10 U, QD
     Route: 065
  8. LISPRO 25LIS75NPL KWIKPEN / MIRIOPEN [Suspect]
     Dosage: 8 U, QD
     Route: 065

REACTIONS (8)
  - Depressed level of consciousness [Recovered/Resolved]
  - Hypoglycaemia [Recovered/Resolved]
  - Hypoglycaemia [Recovered/Resolved]
  - Blood glucose increased [Unknown]
  - Hypoglycaemia [Unknown]
  - Nasopharyngitis [Unknown]
  - Injection site erythema [Not Recovered/Not Resolved]
  - Intentional drug misuse [Not Recovered/Not Resolved]
